FAERS Safety Report 8981154 (Version 2)
Quarter: 2013Q1

REPORT INFORMATION
  Report Type: Spontaneous
  Country: US (occurrence: US)
  Receive Date: 20121221
  Receipt Date: 20130313
  Transmission Date: 20140127
  Serious: Yes (Other)
  Sender: FDA-Public Use
  Company Number: US-GLAXOSMITHKLINE-A1006063A

PATIENT
  Age: 1 Year
  Sex: Female
  Weight: 11.4 kg

DRUGS (4)
  1. TREXIMET [Suspect]
     Indication: MIGRAINE
     Dosage: 1TAB THREE TIMES PER WEEK
     Route: 063
     Dates: start: 201002
  2. VITAMIN B2 [Concomitant]
  3. FOLIC ACID [Concomitant]
  4. MAGNESIUM [Concomitant]

REACTIONS (2)
  - Deafness [Not Recovered/Not Resolved]
  - Exposure during breast feeding [Unknown]
